FAERS Safety Report 5975782-8 (Version None)
Quarter: 2008Q4

REPORT INFORMATION
  Report Type: 
  Country: None (occurrence: None)
  Receive Date: 20081124
  Receipt Date: 20080922
  Transmission Date: 20090506
  Serious: Yes (Hospitalization, Other)
  Sender: FDA-Public Use
  Company Number: US-WYE-H06093208

PATIENT
  Sex: Female

DRUGS (4)
  1. ZOSYN [Suspect]
     Indication: DECUBITUS ULCER
     Dosage: 50 MG, INTRAVENOUS
     Route: 042
  2. ZOSYN [Suspect]
     Indication: OSTEOMYELITIS
     Dosage: 50 MG, INTRAVENOUS
     Route: 042
  3. ZOSYN [Suspect]
     Indication: SKIN INFECTION
     Dosage: 50 MG, INTRAVENOUS
     Route: 042
  4. VANCOMYCIN [Concomitant]

REACTIONS (1)
  - STEVENS-JOHNSON SYNDROME [None]
